FAERS Safety Report 4778825-2 (Version None)
Quarter: 2005Q3

REPORT INFORMATION
  Report Type: 
  Country: None (occurrence: None)
  Receive Date: 20050926
  Receipt Date: 20050824
  Transmission Date: 20060218
  Serious: Yes (Hospitalization, Other)
  Sender: FDA-Public Use
  Company Number: US-GILEAD-2005-0008654

PATIENT
  Sex: Male
  Weight: 71.732 kg

DRUGS (7)
  1. TRUVADA [Suspect]
     Indication: HIV INFECTION
     Route: 048
     Dates: start: 20050513, end: 20050808
  2. BLINDED UK-427,857 [Suspect]
     Indication: HIV INFECTION
     Dates: start: 20050425, end: 20050808
  3. BLINDED EFAVIRENZ [Suspect]
     Indication: HIV INFECTION
     Dates: start: 20050425, end: 20050808
  4. COMBIVIR [Concomitant]
     Indication: HIV INFECTION
     Dates: start: 20050425, end: 20050808
  5. LIPITOR [Concomitant]
     Indication: HYPERCHOLESTEROLAEMIA
     Route: 048
     Dates: start: 20050315, end: 20050804
  6. LORATADINE [Concomitant]
     Indication: SEASONAL ALLERGY
     Route: 048
     Dates: start: 20050215
  7. FAMOTIDINE [Concomitant]
     Indication: DYSPEPSIA
     Route: 048
     Dates: start: 20050701, end: 20050804

REACTIONS (9)
  - ARTHRALGIA [None]
  - ASTHENIA [None]
  - HYPERLACTACIDAEMIA [None]
  - JUVENILE ARTHRITIS [None]
  - MYALGIA [None]
  - PYREXIA [None]
  - RASH ERYTHEMATOUS [None]
  - RED BLOOD CELL SEDIMENTATION RATE INCREASED [None]
  - WHITE BLOOD CELL COUNT INCREASED [None]
